FAERS Safety Report 24667013 (Version 1)
Quarter: 2024Q4

REPORT INFORMATION
  Report Type: Spontaneous
  Country: US (occurrence: US)
  Receive Date: 20241126
  Receipt Date: 20241126
  Transmission Date: 20250114
  Serious: Yes (Hospitalization, Other)
  Sender: INCYTE
  Company Number: US-EVENT-000578

PATIENT

DRUGS (1)
  1. OPZELURA [Suspect]
     Active Substance: RUXOLITINIB PHOSPHATE
     Indication: Dermatitis atopic
     Dosage: UNK, APPLY THINLY TO THE AFFECTED AREA(S) TWICE DAILY AS DIRECTED
     Route: 061
     Dates: start: 202410

REACTIONS (1)
  - Atrial fibrillation [Unknown]
